FAERS Safety Report 13369114 (Version 2)
Quarter: 2017Q1

REPORT INFORMATION
  Report Type: Spontaneous
  Country: CN (occurrence: CN)
  Receive Date: 20170324
  Receipt Date: 20170331
  Transmission Date: 20170429
  Serious: Yes (Other)
  Sender: FDA-Public Use
  Company Number: CN-GILEAD-2017-0263475

PATIENT
  Sex: Male

DRUGS (2)
  1. VIREAD [Suspect]
     Active Substance: TENOFOVIR DISOPROXIL FUMARATE
     Indication: HEPATITIS B
     Dosage: 300 MG, QD
     Route: 048
     Dates: start: 2015
  2. TENOFOVIR DISOPROXIL FUMARATE. [Suspect]
     Active Substance: TENOFOVIR DISOPROXIL FUMARATE
     Indication: HEPATITIS B
     Dosage: 300 MG, QD
     Route: 048

REACTIONS (6)
  - Drug dose omission [Recovered/Resolved]
  - Vocal cord polyp [Recovered/Resolved]
  - Cough [Recovered/Resolved]
  - Hepatitis B core antibody positive [Not Recovered/Not Resolved]
  - Dysphagia [Not Recovered/Not Resolved]
  - Hepatitis B e antigen positive [Not Recovered/Not Resolved]

NARRATIVE: CASE EVENT DATE: 20170315
